FAERS Safety Report 10588493 (Version 1)
Quarter: 2014Q4

REPORT INFORMATION
  Report Type: Spontaneous
  Country: GB (occurrence: GB)
  Receive Date: 20141117
  Receipt Date: 20141117
  Transmission Date: 20150529
  Serious: Yes (Death, Hospitalization)
  Sender: FDA-Public Use
  Company Number: GB-ACTAVIS-2014-24308

PATIENT
  Age: 53 Year
  Sex: Male
  Weight: 88 kg

DRUGS (4)
  1. DEXAMETHASONE. [Concomitant]
     Active Substance: DEXAMETHASONE
     Indication: PROPHYLAXIS OF NAUSEA AND VOMITING
     Dosage: UNK
     Route: 065
     Dates: start: 20141014, end: 20141014
  2. OXALIPLATIN (UNKNOWN) [Suspect]
     Active Substance: OXALIPLATIN
     Indication: ADJUVANT THERAPY
     Dosage: 240 MG, 2 TIMES CYCLICAL; 130MG/M2 =240MG
     Route: 042
     Dates: start: 20140923, end: 20141014
  3. CAPECITABINE. [Concomitant]
     Active Substance: CAPECITABINE
     Indication: ADJUVANT THERAPY
     Dosage: 2 TIMES CYCLICAL; SHORT COURSE ONCOLOGY THERAPY
     Route: 065
     Dates: start: 20140923, end: 20141014
  4. ONDANSETRON [Concomitant]
     Active Substance: ONDANSETRON
     Indication: PROPHYLAXIS OF NAUSEA AND VOMITING
     Dosage: UNK
     Route: 065
     Dates: start: 20141014, end: 20141014

REACTIONS (1)
  - Anaphylactic reaction [Fatal]

NARRATIVE: CASE EVENT DATE: 20141014
